FAERS Safety Report 4999478-4 (Version None)
Quarter: 2006Q2

REPORT INFORMATION
  Report Type: 
  Country: None (occurrence: None)
  Receive Date: 20060509
  Receipt Date: 20060426
  Transmission Date: 20061013
  Serious: Yes (Death)
  Sender: FDA-Public Use
  Company Number: 224572

PATIENT
  Sex: Female

DRUGS (1)
  1. RITUXAN [Suspect]

REACTIONS (1)
  - DEATH [None]
